FAERS Safety Report 6718463-5 (Version None)
Quarter: 2010Q2

REPORT INFORMATION
  Report Type: 
  Country: None (occurrence: None)
  Receive Date: 20100510
  Receipt Date: 20100222
  Transmission Date: 20101027
  Serious: Yes (Other)
  Sender: FDA-Public Use
  Company Number: PHHY2010US27772

PATIENT
  Age: 74 Year
  Sex: Male

DRUGS (5)
  1. ENTACAPONE [Suspect]
     Indication: PARKINSON'S DISEASE
     Dosage: UNK
  2. THALIDOMIDE [Interacting]
     Indication: MYELOFIBROSIS
     Dosage: 50 MG, UNK
  3. ROPINIROLE [Concomitant]
     Indication: PARKINSON'S DISEASE
  4. CARBIDOPA-LEVODOPA [Concomitant]
     Indication: PARKINSON'S DISEASE
  5. PREDNISOLONE [Concomitant]
     Dosage: 50 MG DAILY

REACTIONS (11)
  - DRUG INTERACTION [None]
  - DYSKINESIA [None]
  - FATIGUE [None]
  - MALAISE [None]
  - MOTOR DYSFUNCTION [None]
  - MYELOFIBROSIS [None]
  - MYELOID METAPLASIA [None]
  - ON AND OFF PHENOMENON [None]
  - PARKINSON'S DISEASE [None]
  - SPLENECTOMY [None]
  - SPLENOMEGALY [None]
